FAERS Safety Report 9843291 (Version 2)
Quarter: 2014Q1

REPORT INFORMATION
  Report Type: Spontaneous
  Country: GB (occurrence: GB)
  Receive Date: 20140125
  Receipt Date: 20140207
  Transmission Date: 20141002
  Serious: Yes (Life-Threatening, Hospitalization)
  Sender: FDA-Public Use
  Company Number: US-ASTRAZENECA-2014SE04491

PATIENT
  Age: 58 Day
  Sex: 0
  Weight: 2.7 kg

DRUGS (4)
  1. SYNAGIS [Suspect]
     Indication: ANTIVIRAL PROPHYLAXIS
     Route: 030
     Dates: start: 20140108, end: 20140108
  2. RANITIDINE [Concomitant]
     Indication: GASTROOESOPHAGEAL REFLUX DISEASE
     Route: 048
     Dates: start: 20131203
  3. CEFOTAXIME [Concomitant]
     Indication: SEPSIS
     Route: 042
     Dates: start: 20140110, end: 20140113
  4. AMOXICILLIN [Concomitant]
     Indication: SEPSIS
     Route: 042
     Dates: start: 20140110, end: 20140113

REACTIONS (5)
  - Respiratory arrest [Recovering/Resolving]
  - Cardiac arrest [Recovering/Resolving]
  - Apnoea [Recovered/Resolved]
  - Oxygen saturation decreased [Recovered/Resolved]
  - Bradycardia [Unknown]
